FAERS Safety Report 17991697 (Version 1)
Quarter: 2020Q3

REPORT INFORMATION
  Report Type: Spontaneous
  Country: IT (occurrence: IT)
  Receive Date: 20200707
  Receipt Date: 20200707
  Transmission Date: 20201103
  Serious: Yes (Hospitalization, Other)
  Sender: FDA-Public Use
  Company Number: IT-SA-2020SA172794

PATIENT

DRUGS (1)
  1. FERLIXIT [Suspect]
     Active Substance: SODIUM FERRIC GLUCONATE COMPLEX
     Indication: ANAEMIA
     Dosage: 62.5 MG, QD
     Route: 042
     Dates: start: 20200622, end: 20200622

REACTIONS (1)
  - Respiratory distress [Recovering/Resolving]

NARRATIVE: CASE EVENT DATE: 20200622
